FAERS Safety Report 9821627 (Version 3)
Quarter: 2014Q1

REPORT INFORMATION
  Report Type: Spontaneous
  Country: US (occurrence: US)
  Receive Date: 20140116
  Receipt Date: 20140313
  Transmission Date: 20141002
  Serious: No
  Sender: FDA-Public Use
  Company Number: US-PFIZER INC-2014012971

PATIENT
  Age: 66 Year
  Sex: Female

DRUGS (15)
  1. AMOXICILLIN [Suspect]
     Dosage: UNK
  2. LIPITOR [Suspect]
     Dosage: UNK
  3. CLEOCIN [Suspect]
     Dosage: UNK
  4. LOPRESSOR [Suspect]
     Dosage: UNK
  5. PREDNISONE [Suspect]
     Dosage: UNK
  6. AMITRIPTYLINE [Suspect]
     Dosage: UNK
  7. CECLOR [Suspect]
     Dosage: UNK
  8. KEFLEX [Suspect]
     Dosage: UNK
  9. CEFTIN [Suspect]
     Dosage: UNK
  10. LASIX [Suspect]
     Dosage: UNK
  11. COZAAR [Suspect]
     Dosage: UNK
  12. FLOXIN [Suspect]
     Dosage: UNK
  13. CRESTOR [Suspect]
     Dosage: UNK
  14. BACTRIM [Suspect]
     Dosage: UNK
  15. WARFARIN [Suspect]
     Dosage: UNK

REACTIONS (1)
  - Drug hypersensitivity [Unknown]
